FAERS Safety Report 6178138-0 (Version None)
Quarter: 2009Q2

REPORT INFORMATION
  Report Type: 
  Country: None (occurrence: None)
  Receive Date: 20090504
  Receipt Date: 20090205
  Transmission Date: 20091009
  Serious: No
  Sender: FDA-Public Use
  Company Number: US-ALEXION-A200900103

PATIENT
  Sex: Male

DRUGS (6)
  1. SOLIRIS [Suspect]
     Indication: PAROXYSMAL NOCTURNAL HAEMOGLOBINURIA
     Dosage: 600 MG, UNK
     Route: 042
     Dates: start: 20090204
  2. COUMADIN [Suspect]
     Dosage: 5 MG, QD
     Route: 048
  3. BENADRYL [Concomitant]
     Indication: PREMEDICATION
  4. ANTIEMETICS AND ANTINAUSEANTS [Concomitant]
     Indication: PREMEDICATION
  5. PREDNISONE [Concomitant]
     Dosage: 5 MG, QD
     Route: 048
  6. DANAZOL [Concomitant]
     Dosage: 400 MG, QD
     Route: 048

REACTIONS (1)
  - EAR HAEMORRHAGE [None]
